FAERS Safety Report 7579213-6 (Version None)
Quarter: 2011Q2

REPORT INFORMATION
  Report Type: 
  Country: None (occurrence: None)
  Receive Date: 20110628
  Receipt Date: 20110616
  Transmission Date: 20111010
  Serious: Yes (Hospitalization, Other)
  Sender: FDA-Public Use
  Company Number: GB-ELI_LILLY_AND_COMPANY-GB201106004555

PATIENT
  Age: 24 Year
  Sex: Female

DRUGS (4)
  1. OLANZAPINE [Suspect]
     Dosage: UNK
     Dates: start: 20040801
  2. OLANZAPINE [Suspect]
     Dosage: UNK
     Route: 048
     Dates: start: 20030519
  3. OLANZAPINE [Suspect]
     Dosage: UNK
     Dates: start: 20030508
  4. CLOZAPINE [Concomitant]
     Indication: SCHIZOPHRENIA
     Dosage: UNK
     Route: 048
     Dates: start: 20030510

REACTIONS (5)
  - INTENTIONAL SELF-INJURY [None]
  - INTENTIONAL OVERDOSE [None]
  - HEART RATE IRREGULAR [None]
  - BLOOD PRESSURE FLUCTUATION [None]
  - PYREXIA [None]
